FAERS Safety Report 22249651 (Version 2)
Quarter: 2023Q2

REPORT INFORMATION
  Report Type: Spontaneous
  Country: US (occurrence: US)
  Receive Date: 20230425
  Receipt Date: 20230621
  Transmission Date: 20230722
  Serious: No
  Sender: FDA-Public Use
  Company Number: US-BEH-2023157649

PATIENT
  Age: 45 Year
  Sex: Female

DRUGS (1)
  1. HIZENTRA [Suspect]
     Active Substance: HUMAN IMMUNOGLOBULIN G
     Indication: Selective IgG subclass deficiency
     Dosage: 3 GRAMS QW
     Route: 058
     Dates: start: 202303

REACTIONS (1)
  - Arthropod sting [Recovered/Resolved]

NARRATIVE: CASE EVENT DATE: 20230412
